FAERS Safety Report 6089483-1 (Version None)
Quarter: 2009Q1

REPORT INFORMATION
  Report Type: 
  Country: None (occurrence: None)
  Receive Date: 20090224
  Receipt Date: 20090130
  Transmission Date: 20090719
  Serious: Yes (Death)
  Sender: FDA-Public Use
  Company Number: US-TYCO HEALTHCARE/MALLINCKRODT-T200900270

PATIENT
  Age: 29 Year
  Sex: Male

DRUGS (4)
  1. OXYCODONE [Suspect]
     Route: 048
  2. ACETAMINOPHEN AND OXYCODONE HCL [Suspect]
     Route: 048
  3. ACETAMINOPHEN AND HYDROCODONE BITARTRATE [Suspect]
     Route: 048
  4. ALPRAZOLAM [Suspect]
     Route: 048

REACTIONS (1)
  - COMPLETED SUICIDE [None]
